FAERS Safety Report 14119606 (Version 1)
Quarter: 2017Q4

REPORT INFORMATION
  Report Type: Spontaneous
  Country: US (occurrence: US)
  Receive Date: 20171024
  Receipt Date: 20171024
  Transmission Date: 20180321
  Serious: Yes (Disabling, Other)
  Sender: FDA-Public Use
  Company Number: None

PATIENT
  Age: 32 Year
  Sex: Female
  Weight: 52.65 kg

DRUGS (4)
  1. VITAFUSION MULTIVITES [Concomitant]
  2. LORYNA [Suspect]
     Active Substance: DROSPIRENONE\ETHINYL ESTRADIOL
     Indication: ACNE
     Route: 048
  3. TUMERIC CURCUMIN [Concomitant]
  4. TYLENOL [Concomitant]
     Active Substance: ACETAMINOPHEN

REACTIONS (13)
  - Crying [None]
  - Irritability [None]
  - Feeling abnormal [None]
  - Anxiety [None]
  - Depression [None]
  - Social avoidant behaviour [None]
  - Libido decreased [None]
  - Libido increased [None]
  - Somnolence [None]
  - Head discomfort [None]
  - Frustration tolerance decreased [None]
  - Mood altered [None]
  - Decreased appetite [None]

NARRATIVE: CASE EVENT DATE: 20170601
